FAERS Safety Report 8901523 (Version 1)
Quarter: 2012Q4

REPORT INFORMATION
  Report Type: Report from Study
  Country: US (occurrence: US)
  Receive Date: 20121108
  Receipt Date: 20121108
  Transmission Date: 20130627
  Serious: No
  Sender: FDA-Public Use
  Company Number: US-VERTEX PHARMACEUTICAL INC.-2012-024161

PATIENT
  Age: 58 Year
  Sex: Male

DRUGS (10)
  1. TELAPREVIR [Suspect]
     Indication: HEPATITIS C
     Dosage: 750 mg, tid
     Route: 048
  2. PEGASYS [Suspect]
     Indication: HEPATITIS C
     Dosage: UNK
     Route: 058
  3. RIBAVIRIN [Suspect]
     Indication: HEPATITIS C
     Dosage: 200 mg, UNK
  4. LISINOPRIL [Concomitant]
     Dosage: 10 mg, UNK
  5. FISH OIL [Concomitant]
  6. COCONUT OIL [Concomitant]
     Dosage: 1000 mg, UNK
  7. CODEINE SULFATE [Concomitant]
     Dosage: 30 mg, UNK
  8. OXYCODONE WITH APAP [Concomitant]
  9. ZANAFLEX [Concomitant]
     Dosage: 4 mg, UNK
  10. VIAGRA [Concomitant]
     Dosage: 100 mg, UNK

REACTIONS (6)
  - Influenza like illness [Unknown]
  - Emotional disorder [Unknown]
  - Vision blurred [Unknown]
  - Anorectal discomfort [Unknown]
  - Anaemia [Unknown]
  - Nausea [Unknown]
